FAERS Safety Report 26173291 (Version 1)
Quarter: 2025Q4

REPORT INFORMATION
  Report Type: Spontaneous
  Country: US (occurrence: US)
  Receive Date: 20251218
  Receipt Date: 20251218
  Transmission Date: 20260118
  Serious: Yes (Other)
  Sender: SANOFI AVENTIS
  Company Number: US-SA-2025SA374933

PATIENT
  Age: 38 Year
  Sex: Female

DRUGS (1)
  1. DUPIXENT [Suspect]
     Active Substance: DUPILUMAB
     Indication: Eosinophilic oesophagitis
     Dosage: 300 MG, QW
     Route: 058
     Dates: start: 202510

REACTIONS (12)
  - Choking [Unknown]
  - Panic reaction [Unknown]
  - Dysphagia [Unknown]
  - Dyspnoea [Unknown]
  - Chest pain [Unknown]
  - Perioral dermatitis [Unknown]
  - Musculoskeletal chest pain [Unknown]
  - Pruritus [Unknown]
  - Erythema [Unknown]
  - Eosinophilic oesophagitis [Unknown]
  - Rash [Unknown]
  - Arthralgia [Unknown]

NARRATIVE: CASE EVENT DATE: 20250101
